FAERS Safety Report 24839330 (Version 1)
Quarter: 2025Q1

REPORT INFORMATION
  Report Type: Spontaneous
  Country: CH (occurrence: CH)
  Receive Date: 20250114
  Receipt Date: 20250114
  Transmission Date: 20250409
  Serious: Yes (Other)
  Sender: CHEPLAPHARM
  Company Number: CH-CHEPLA-2025000366

PATIENT
  Age: 28 Year
  Sex: Male
  Weight: 54 kg

DRUGS (9)
  1. OLANZAPINE [Suspect]
     Active Substance: OLANZAPINE
     Indication: Behaviour disorder
     Dosage: OLANZAPINE 10 MG/D?DAILY DOSE: 10 MILLIGRAM
  2. OLANZAPINE [Suspect]
     Active Substance: OLANZAPINE
     Indication: Behaviour disorder
  3. FLUVOXAMINE [Suspect]
     Active Substance: FLUVOXAMINE
     Indication: Behaviour disorder
     Dosage: FLUVOXAMINE 150 MG/D?DAILY DOSE: 150 MILLIGRAM
  4. TRAMADOL [Suspect]
     Active Substance: TRAMADOL
     Indication: Intentional self-injury
     Dosage: TRAMADOL-BASED TREATMENT 200 MG/D?DAILY DOSE: 200 MILLIGRAM
  5. ESOMEPRAZOLE [Suspect]
     Active Substance: ESOMEPRAZOLE
     Indication: Reflux gastritis
     Dosage: ESOMEPRAZOLE: 40 MG/D?DAILY DOSE: 40 MILLIGRAM
  6. ALPRAZOLAM [Suspect]
     Active Substance: ALPRAZOLAM
     Indication: Behaviour disorder
  7. IBUPROFEN [Concomitant]
     Active Substance: IBUPROFEN
  8. VALPROATE SODIUM [Concomitant]
     Active Substance: VALPROATE SODIUM
  9. LACOSAMIDE [Concomitant]
     Active Substance: LACOSAMIDE

REACTIONS (2)
  - Epilepsy [Recovered/Resolved]
  - Off label use [Unknown]
